FAERS Safety Report 25787383 (Version 1)
Quarter: 2025Q3

REPORT INFORMATION
  Report Type: Spontaneous
  Country: US (occurrence: US)
  Receive Date: 20250910
  Receipt Date: 20250910
  Transmission Date: 20251020
  Serious: No
  Sender: BAYER HEALTHCARE PHARMACEUTICALS INC.
  Company Number: US-BAYER-2025A119177

PATIENT
  Age: 40 Year
  Sex: Male

DRUGS (3)
  1. ESTRADIOL [Suspect]
     Active Substance: ESTRADIOL
     Indication: Transgender hormonal therapy
     Route: 062
     Dates: start: 202107
  2. SPIRONOLACTONE [Concomitant]
     Active Substance: SPIRONOLACTONE
     Indication: Transgender hormonal therapy
     Dates: start: 202112
  3. Progesterone abbott [Concomitant]
     Indication: Transgender hormonal therapy
     Dates: start: 202201

REACTIONS (2)
  - Product use in unapproved indication [None]
  - Product prescribing issue [None]
